FAERS Safety Report 9259565 (Version 3)
Quarter: 2013Q4

REPORT INFORMATION
  Report Type: Spontaneous
  Country: US (occurrence: US)
  Receive Date: 20130429
  Receipt Date: 20131122
  Transmission Date: 20140711
  Serious: Yes (Disabling)
  Sender: FDA-Public Use
  Company Number: US-ASTRAZENECA-2013SE27775

PATIENT
  Age: 26862 Day
  Sex: Female
  Weight: 95.3 kg

DRUGS (10)
  1. NEXIUM [Suspect]
     Indication: GASTROOESOPHAGEAL REFLUX DISEASE
     Route: 048
     Dates: start: 2004, end: 2006
  2. NEXIUM [Suspect]
     Indication: GOITRE
     Route: 048
     Dates: start: 2004, end: 2006
  3. NEXIUM [Suspect]
     Indication: GASTROOESOPHAGEAL REFLUX DISEASE
     Route: 048
     Dates: start: 20050721
  4. NEXIUM [Suspect]
     Indication: GOITRE
     Route: 048
     Dates: start: 20050721
  5. EXCEDRIN [Concomitant]
     Dosage: 2 TABLETS DAILY
  6. POTASSIUM [Concomitant]
  7. PROCARDIA [Concomitant]
  8. PLAVIX [Concomitant]
  9. ASPIRIN [Concomitant]
  10. ROLAIDS [Concomitant]
     Dosage: AS NEEDED

REACTIONS (14)
  - Irritable bowel syndrome [Unknown]
  - Colitis [Unknown]
  - Cholecystitis [Unknown]
  - Cystitis [Unknown]
  - Osteoporosis [Unknown]
  - Bone density decreased [Unknown]
  - Bone disorder [Unknown]
  - Foot fracture [Unknown]
  - Arthritis [Unknown]
  - Calcium deficiency [Unknown]
  - Glaucoma [Unknown]
  - Hypothyroidism [Unknown]
  - Scoliosis [Unknown]
  - Spinal osteoarthritis [Unknown]
